FAERS Safety Report 8498965 (Version 6)
Quarter: 2014Q1

REPORT INFORMATION
  Report Type: Report from Study
  Country: US (occurrence: US)
  Receive Date: 20120409
  Receipt Date: 20140321
  Transmission Date: 20141002
  Serious: Yes (Death, Hospitalization)
  Sender: FDA-Public Use
  Company Number: US-PFIZER INC-2012084437

PATIENT
  Age: 69 Year
  Sex: Female

DRUGS (12)
  1. AXITINIB [Suspect]
     Indication: CLEAR CELL RENAL CELL CARCINOMA
     Dosage: 5 MG, 2X/DAY
     Route: 048
     Dates: start: 20120229, end: 20120311
  2. MDX-1106 [Suspect]
     Indication: CLEAR CELL RENAL CELL CARCINOMA
     Dosage: 556 MG, DAILY
     Route: 042
     Dates: start: 20120110, end: 20120131
  3. AVASTIN [Suspect]
     Indication: CLEAR CELL RENAL CELL CARCINOMA
     Dosage: 10 MG/KG, UNK
     Dates: start: 20120322
  4. VYTORIN [Concomitant]
     Dosage: UNK
     Dates: start: 2008
  5. SYNTHROID [Concomitant]
     Dosage: UNK
     Dates: start: 2006
  6. LOVENOX [Concomitant]
     Dosage: UNK
     Dates: start: 20111220
  7. CALCITRIOL [Concomitant]
     Dosage: UNK
     Dates: start: 20111222
  8. CALCIUM CARBONATE [Concomitant]
     Dosage: UNK
     Dates: start: 20111222
  9. ALLOPURINOL [Concomitant]
     Dosage: UNK
     Dates: start: 20111228
  10. OMEPRAZOLE [Concomitant]
     Dosage: UNK
     Dates: start: 20120111
  11. ZANTAC [Concomitant]
     Dosage: UNK
     Dates: start: 20120128
  12. TYLENOL PM [Concomitant]
     Dosage: UNK
     Dates: start: 201106

REACTIONS (12)
  - Disease progression [Fatal]
  - Clear cell renal cell carcinoma [Fatal]
  - Toxicity to various agents [Recovered/Resolved]
  - Renal failure acute [Not Recovered/Not Resolved]
  - Hyponatraemia [Recovered/Resolved]
  - Back pain [Recovered/Resolved with Sequelae]
  - Aspartate aminotransferase increased [Not Recovered/Not Resolved]
  - Alanine aminotransferase increased [Recovered/Resolved]
  - Blood alkaline phosphatase increased [Recovered/Resolved with Sequelae]
  - Blood bilirubin increased [Recovered/Resolved]
  - Blood creatinine increased [Recovered/Resolved]
  - Urinary tract infection [Recovered/Resolved]
